FAERS Safety Report 17789093 (Version 5)
Quarter: 2021Q1

REPORT INFORMATION
  Report Type: Report from Study
  Country: US (occurrence: US)
  Receive Date: 20200515
  Receipt Date: 20210304
  Transmission Date: 20210419
  Serious: Yes (Hospitalization, Other)
  Sender: FDA-Public Use
  Company Number: US-ACADIA PHARMACEUTICALS INC.-ACA-2020-PIM-001498

PATIENT
  Age: 69 Year
  Sex: Male

DRUGS (4)
  1. NUPLAZID [Suspect]
     Active Substance: PIMAVANSERIN TARTRATE
     Dosage: 34 MILLIGRAM, QD
     Route: 048
  2. NUPLAZID [Suspect]
     Active Substance: PIMAVANSERIN TARTRATE
     Dosage: 34 MILLIGRAM, QD
     Route: 048
     Dates: start: 20190827
  3. EFFEXOR [Suspect]
     Active Substance: VENLAFAXINE HYDROCHLORIDE
     Indication: PRODUCT USED FOR UNKNOWN INDICATION
     Dosage: UNK
  4. NUPLAZID [Suspect]
     Active Substance: PIMAVANSERIN TARTRATE
     Indication: PARKINSON^S DISEASE
     Dosage: 34 MILLIGRAM, QD
     Route: 048
     Dates: start: 201907

REACTIONS (16)
  - Insomnia [Not Recovered/Not Resolved]
  - Sleep talking [Not Recovered/Not Resolved]
  - Confusional state [Not Recovered/Not Resolved]
  - Peripheral swelling [Unknown]
  - Product dose omission issue [Unknown]
  - Fall [Unknown]
  - Lower limb fracture [Not Recovered/Not Resolved]
  - Dementia [Not Recovered/Not Resolved]
  - Weight decreased [Unknown]
  - Incorrect dose administered [Unknown]
  - Hallucination [Not Recovered/Not Resolved]
  - Hallucination [Not Recovered/Not Resolved]
  - Diverticulitis [Unknown]
  - Limb injury [Unknown]
  - Decreased appetite [Unknown]
  - Staphylococcal infection [Unknown]

NARRATIVE: CASE EVENT DATE: 202007
